APPROVED DRUG PRODUCT: METRONIDAZOLE
Active Ingredient: METRONIDAZOLE
Strength: 500MG
Dosage Form/Route: TABLET;ORAL
Application: A070009 | Product #001
Applicant: SUPERPHARM CORP
Approved: Dec 11, 1984 | RLD: No | RS: No | Type: DISCN